FAERS Safety Report 9162387 (Version 1)
Quarter: 2013Q1

REPORT INFORMATION
  Report Type: Spontaneous
  Country: GR (occurrence: None)
  Receive Date: 20130225
  Receipt Date: 20130225
  Transmission Date: 20140127
  Serious: Yes (Hospitalization)
  Sender: FDA-Public Use
  Company Number: AUR-APL-2013-01550

PATIENT
  Age: 17 Year
  Sex: Male

DRUGS (5)
  1. PIPERACILLIN+TAZOBACTAM [Suspect]
     Indication: PNEUMONIA
     Dosage: 18 GM (4.5 GM,4 IN 1 D),UNKNOWN
  2. LINEZOLID [Suspect]
     Indication: PNEUMONIA
     Dosage: 1200 MG (600 MG,2 IN 1 D),UNKNOWN
  3. TIGECYCLINE [Suspect]
     Indication: PRODUCT USED FOR UNKNOWN INDICATION
  4. CLARITHROMYCIN [Suspect]
     Indication: PNEUMONIA
     Dosage: 500 MG (500 MG, 1 IN 1 D), UNKNOWN
  5. MOXIFLOXACIN [Suspect]
     Indication: PNEUMONIA
     Dosage: 400 (400, 1 IN 1 D), UNKNOWN

REACTIONS (9)
  - White blood cell count decreased [None]
  - Pneumothorax [None]
  - Klebsiella test positive [None]
  - Acinetobacter test positive [None]
  - Respiratory disorder [None]
  - Condition aggravated [None]
  - Staphylococcus test positive [None]
  - Haemodynamic instability [None]
  - Respiratory acidosis [None]
